FAERS Safety Report 5579502-0 (Version None)
Quarter: 2008Q1

REPORT INFORMATION
  Report Type: 
  Country: None (occurrence: None)
  Receive Date: 20080102
  Receipt Date: 20071219
  Transmission Date: 20080703
  Serious: Yes (Other)
  Sender: FDA-Public Use
  Company Number: US-AMGEN-US255028

PATIENT
  Age: 48 Year
  Sex: Female
  Weight: 69.9 kg

DRUGS (6)
  1. PROCRIT [Suspect]
     Indication: ANAEMIA
     Dates: start: 20070401
  2. PEG-INTRON [Suspect]
     Indication: HEPATITIS C
     Route: 058
     Dates: start: 20070405
  3. RIBAVIRIN [Suspect]
     Indication: HEPATITIS C
     Route: 048
     Dates: start: 20070405
  4. INSULIN [Suspect]
     Indication: DIABETES MELLITUS
     Route: 050
     Dates: start: 20071001
  5. SYNTHROID [Concomitant]
  6. LIPITOR [Concomitant]

REACTIONS (8)
  - ALOPECIA [None]
  - ANXIETY [None]
  - ASTHENIA [None]
  - BLOOD GLUCOSE DECREASED [None]
  - BLOOD GLUCOSE INCREASED [None]
  - CONTUSION [None]
  - GLYCOSYLATED HAEMOGLOBIN INCREASED [None]
  - KETOACIDOSIS [None]
